FAERS Safety Report 7940715-1 (Version None)
Quarter: 2011Q4

REPORT INFORMATION
  Report Type: 
  Country: None (occurrence: None)
  Receive Date: 20111114
  Receipt Date: 20100929
  Transmission Date: 20120403
  Serious: Yes (Death)
  Sender: FDA-Public Use
  Company Number: 2010S1001420

PATIENT
  Sex: Male

DRUGS (9)
  1. CUBICIN [Suspect]
     Indication: SEPSIS
     Dates: start: 20100625
  2. RIFAMPIN [Concomitant]
  3. IMIPENEM [Concomitant]
  4. SYNERCID [Concomitant]
  5. CEFEPIME [Concomitant]
  6. PIPERACILLIN AND TAZOBACTAM [Concomitant]
  7. VANCOMYCIN [Concomitant]
  8. GENTAMICIN [Concomitant]
  9. CEFTRIAXONE [Concomitant]

REACTIONS (2)
  - ANTIMICROBIAL SUSCEPTIBILITY TEST RESISTANT [None]
  - DEATH [None]
